FAERS Safety Report 18275627 (Version 4)
Quarter: 2022Q3

REPORT INFORMATION
  Report Type: Spontaneous
  Country: CA (occurrence: CA)
  Receive Date: 20200917
  Receipt Date: 20220923
  Transmission Date: 20221026
  Serious: Yes (Other)
  Sender: FDA-Public Use
  Company Number: None

PATIENT
  Sex: Female

DRUGS (20)
  1. METHYLDOPA [Suspect]
     Active Substance: METHYLDOPA
     Route: 064
  2. METFORMIN [Suspect]
     Active Substance: METFORMIN HYDROCHLORIDE
     Route: 064
  3. ASPIRIN [Suspect]
     Active Substance: ASPIRIN
     Route: 064
  4. CHLORHEXIDINE GLUCONATE [Suspect]
     Active Substance: CHLORHEXIDINE GLUCONATE
     Dosage: ORAL RINSE
     Route: 064
  5. DICLECTIN [Suspect]
     Active Substance: DOXYLAMINE SUCCINATE\PYRIDOXINE HYDROCHLORIDE
     Dosage: TABLET (DELAYED- RELEASE)
     Route: 064
  6. HUMULIN R [Suspect]
     Active Substance: INSULIN HUMAN
     Route: 064
  7. NIFEDIPINE [Suspect]
     Active Substance: NIFEDIPINE
     Dosage: NOT SPECIFIED
     Route: 064
  8. SILDENAFIL [Suspect]
     Active Substance: SILDENAFIL
     Route: 064
  9. INSULIN NOS [Suspect]
     Active Substance: INSULIN NOS
     Route: 064
  10. MINERALS\VITAMINS [Suspect]
     Active Substance: MINERALS\VITAMINS
     Route: 064
  11. VITAMINS [Suspect]
     Active Substance: VITAMINS
     Route: 064
  12. PANTOTHENIC ACID [Suspect]
     Active Substance: PANTOTHENIC ACID
     Route: 064
  13. ASCORBIC ACID\ZINC [Suspect]
     Active Substance: ASCORBIC ACID\ZINC
     Route: 064
  14. NIACINAMIDE\PYRIDOXINE HYDROCHLORIDE\RIBOFLAVIN\THIAMINE HYDROCHLORIDE [Suspect]
     Active Substance: NIACINAMIDE\PYRIDOXINE HYDROCHLORIDE\RIBOFLAVIN\THIAMINE HYDROCHLORIDE
     Route: 064
  15. PYRIDOXINE [Suspect]
     Active Substance: PYRIDOXINE
     Route: 064
  16. RIBOFLAVIN [Suspect]
     Active Substance: RIBOFLAVIN
     Route: 064
  17. THIAMINE HYDROCHLORIDE [Suspect]
     Active Substance: THIAMINE HYDROCHLORIDE
     Route: 064
  18. VITAMIN B12 [Suspect]
     Active Substance: CYANOCOBALAMIN
     Route: 064
  19. VITAMIN E [Suspect]
     Active Substance: .ALPHA.-TOCOPHEROL
     Route: 064
  20. CHLORHEXIDINE GLUCONATE\ISOPROPYL ALCOHOL [Suspect]
     Active Substance: CHLORHEXIDINE GLUCONATE\ISOPROPYL ALCOHOL
     Route: 064

REACTIONS (2)
  - Premature baby [Unknown]
  - Foetal exposure during pregnancy [Unknown]
